FAERS Safety Report 11826141 (Version 1)
Quarter: 2015Q4

REPORT INFORMATION
  Report Type: Spontaneous
  Country: US (occurrence: US)
  Receive Date: 20151211
  Receipt Date: 20151211
  Transmission Date: 20160305
  Serious: No
  Sender: FDA-Public Use
  Company Number: US-009507513-1512USA004410

PATIENT
  Age: 24 Year
  Sex: Female
  Weight: 81.63 kg

DRUGS (1)
  1. IMPLANON [Suspect]
     Active Substance: ETONOGESTREL
     Indication: CONTRACEPTION
     Dosage: UNK, EVERY 3 YEARS (LEFT ARM)
     Route: 059
     Dates: start: 20121206

REACTIONS (5)
  - Expired product administered [Unknown]
  - Incorrect drug administration duration [Unknown]
  - Hypoaesthesia [Unknown]
  - Headache [Unknown]
  - Fatigue [Unknown]

NARRATIVE: CASE EVENT DATE: 20151207
